FAERS Safety Report 6375538-0 (Version None)
Quarter: 2009Q3

REPORT INFORMATION
  Report Type: 
  Country: None (occurrence: None)
  Receive Date: 20090917
  Receipt Date: 20090917
  Transmission Date: 20100115
  Serious: No
  Sender: FDA-Public Use
  Company Number: None

PATIENT
  Sex: Male

DRUGS (2)
  1. HUMULIN 70/30 [Suspect]
     Dosage: 22 UNITS QHS SQ
     Route: 058
  2. REGULAR INSULIN [Suspect]
     Dosage: 8 UNITS QHS SQ
     Route: 058

REACTIONS (1)
  - BLOOD GLUCOSE INCREASED [None]
